FAERS Safety Report 6707571-0 (Version None)
Quarter: 2010Q2

REPORT INFORMATION
  Report Type: 
  Country: None (occurrence: None)
  Receive Date: 20100503
  Receipt Date: 20100422
  Transmission Date: 20101027
  Serious: Yes (Hospitalization, Other)
  Sender: FDA-Public Use
  Company Number: US-ELI_LILLY_AND_COMPANY-US201001003930

PATIENT
  Sex: Female
  Weight: 92.971 kg

DRUGS (7)
  1. FORTEO [Suspect]
     Indication: OSTEOPOROSIS
     Dosage: 20 UG, DAILY (1/D)
     Dates: start: 20081001
  2. DIOVAN [Concomitant]
  3. CALCIUM [Concomitant]
  4. SENNA [Concomitant]
  5. MULTI-VITAMIN [Concomitant]
  6. IMIPRAMINE [Concomitant]
  7. METAMUCIL-2 [Concomitant]

REACTIONS (3)
  - FALL [None]
  - FOOT FRACTURE [None]
  - MYOCARDIAL INFARCTION [None]
